FAERS Safety Report 8236026-X (Version None)
Quarter: 2012Q1

REPORT INFORMATION
  Report Type: 
  Country: None (occurrence: None)
  Receive Date: 20120326
  Receipt Date: 20120315
  Transmission Date: 20120608
  Serious: Yes (Disabling, Other)
  Sender: FDA-Public Use
  Company Number: US-ASTRAZENECA-2011SE57411

PATIENT
  Age: 63 Year
  Sex: Male
  Weight: 78.9 kg

DRUGS (10)
  1. IRON [Concomitant]
  2. SEROQUEL [Suspect]
     Indication: ACUTE PSYCHOSIS
     Route: 048
     Dates: start: 19990701
  3. RANDELA [Concomitant]
  4. SEROQUEL [Suspect]
     Route: 048
     Dates: start: 19990701
  5. SEROQUEL [Suspect]
     Indication: ATTENTION DEFICIT/HYPERACTIVITY DISORDER
     Route: 048
     Dates: start: 19990701
  6. CASODEX [Concomitant]
  7. HYDROZELINE [Concomitant]
  8. SEROQUEL [Suspect]
     Route: 048
     Dates: start: 19990701
  9. BUSPAR [Concomitant]
     Indication: ANXIETY
     Route: 048
     Dates: start: 19990825
  10. VISPARONE [Concomitant]

REACTIONS (6)
  - PROSTATE CANCER [None]
  - MALIGNANT LYMPHOID NEOPLASM [None]
  - MALIGNANT MELANOMA [None]
  - BONE NEOPLASM MALIGNANT [None]
  - LUNG NEOPLASM MALIGNANT [None]
  - WEIGHT DECREASED [None]
